FAERS Safety Report 16206833 (Version 1)
Quarter: 2019Q2

REPORT INFORMATION
  Report Type: Spontaneous
  Country: US (occurrence: US)
  Receive Date: 20190313
  Receipt Date: 20190313
  Transmission Date: 20190711
  Serious: Yes (Other)
  Sender: FDA-Public Use
  Company Number: None

PATIENT
  Age: 36 Year

DRUGS (1)
  1. SUBOXONE [Suspect]
     Active Substance: BUPRENORPHINE HYDROCHLORIDE\NALOXONE HYDROCHLORIDE
     Indication: SUBSTANCE USE DISORDER
     Route: 060
     Dates: start: 2015, end: 20190301

REACTIONS (4)
  - Skin haemorrhage [None]
  - Pruritus [None]
  - Scratch [None]
  - Drug ineffective [None]

NARRATIVE: CASE EVENT DATE: 20190222
